FAERS Safety Report 7210677-3 (Version None)
Quarter: 2010Q4

REPORT INFORMATION
  Report Type: 
  Country: None (occurrence: None)
  Receive Date: 20101223
  Receipt Date: 20101125
  Transmission Date: 20110411
  Serious: Yes (Hospitalization)
  Sender: FDA-Public Use
  Company Number: TPH-00298

PATIENT
  Age: 22 Year
  Sex: Female

DRUGS (3)
  1. TRIQUILAR (ETHINYLESTRADIOL + LEVONORGESTREL) COATED TABLET; REGIMEN # [Suspect]
     Indication: MENSTRUATION IRREGULAR
     Dosage: 1 DF, QD ORAL
     Route: 048
     Dates: start: 20100401, end: 20101012
  2. URSO 250 [Concomitant]
  3. GASTER (FAMOTIDINE) [Concomitant]

REACTIONS (2)
  - PARADOXICAL EMBOLISM [None]
  - RENAL INFARCT [None]
